FAERS Safety Report 17697582 (Version 1)
Quarter: 2020Q2

REPORT INFORMATION
  Report Type: Spontaneous
  Country: US (occurrence: US)
  Receive Date: 20200422
  Receipt Date: 20200422
  Transmission Date: 20200714
  Serious: Yes (Other)
  Sender: FDA-Public Use
  Company Number: None

PATIENT
  Age: 66 Year
  Sex: Male
  Weight: 126 kg

DRUGS (6)
  1. OSTEO-BI-FLEX [Concomitant]
  2. VITAMIN D3 [Concomitant]
     Active Substance: CHOLECALCIFEROL
  3. RANITIDINE. [Suspect]
     Active Substance: RANITIDINE
     Indication: ABDOMINAL DISCOMFORT
     Dosage: ?          QUANTITY:1 CAPSULE(S);?
     Route: 048
  4. MULTIVITAMIN GUMMIES [Concomitant]
  5. ZYFLAMEND [Concomitant]
  6. GOLO RELEASE [Concomitant]

REACTIONS (1)
  - Clear cell renal cell carcinoma [None]

NARRATIVE: CASE EVENT DATE: 20200114
